FAERS Safety Report 11105755 (Version 1)
Quarter: 2015Q2

REPORT INFORMATION
  Report Type: Spontaneous
  Country: US (occurrence: None)
  Receive Date: 20150511
  Receipt Date: 20150511
  Transmission Date: 20150821
  Serious: Yes (Other)
  Sender: FDA-Public Use
  Company Number: None

PATIENT
  Age: 86 Year
  Sex: Female
  Weight: 70.31 kg

DRUGS (1)
  1. METRONIDAZOLE. [Suspect]
     Active Substance: METRONIDAZOLE
     Indication: GASTROINTESTINAL INFECTION
     Dosage: SEP 19 - SEP 22

REACTIONS (9)
  - Diarrhoea [None]
  - Urinary tract infection [None]
  - Flatulence [None]
  - Nausea [None]
  - Dysuria [None]
  - Photopsia [None]
  - Tremor [None]
  - Gastric pH decreased [None]
  - Feeding disorder [None]

NARRATIVE: CASE EVENT DATE: 20130919
